FAERS Safety Report 5904815-X (Version None)
Quarter: 2008Q4

REPORT INFORMATION
  Report Type: 
  Country: None (occurrence: None)
  Receive Date: 20081001
  Receipt Date: 20080922
  Transmission Date: 20090506
  Serious: Yes (Hospitalization)
  Sender: FDA-Public Use
  Company Number: US-MERCK-0705USA04146

PATIENT
  Age: 51 Year
  Sex: Female

DRUGS (1)
  1. FOSAMAX [Suspect]
     Indication: OSTEOPOROSIS
     Route: 048
     Dates: start: 20000101, end: 20060501

REACTIONS (16)
  - ARTHRALGIA [None]
  - BACK PAIN [None]
  - BLOOD CHOLESTEROL INCREASED [None]
  - DENTAL CARIES [None]
  - DIABETES MELLITUS [None]
  - GAUCHER'S DISEASE [None]
  - GINGIVAL BLEEDING [None]
  - GINGIVAL DISORDER [None]
  - HORMONE THERAPY [None]
  - MYOCARDIAL INFARCTION [None]
  - ORAL INFECTION [None]
  - OSTEOARTHRITIS [None]
  - PAIN [None]
  - RADICULAR PAIN [None]
  - SICKLE CELL ANAEMIA [None]
  - SWELLING [None]
